FAERS Safety Report 8519103-5 (Version None)
Quarter: 2012Q3

REPORT INFORMATION
  Report Type: 
  Country: None (occurrence: None)
  Receive Date: 20120718
  Receipt Date: 20120711
  Transmission Date: 20120928
  Serious: Yes (Other)
  Sender: FDA-Public Use
  Company Number: US-ABBOTT-12P-163-0943040-00

PATIENT
  Sex: Male
  Weight: 77.8 kg

DRUGS (3)
  1. ASACOL [Concomitant]
     Indication: PRODUCT USED FOR UNKNOWN INDICATION
  2. PREDNISONE [Concomitant]
     Indication: PRODUCT USED FOR UNKNOWN INDICATION
  3. HUMIRA [Suspect]
     Indication: CROHN'S DISEASE
     Route: 058
     Dates: start: 20080501

REACTIONS (17)
  - ADRENAL NEOPLASM [None]
  - CONFUSIONAL STATE [None]
  - LUNG NEOPLASM [None]
  - WEIGHT DECREASED [None]
  - CHEST PAIN [None]
  - CENTRAL NERVOUS SYSTEM LESION [None]
  - ATELECTASIS [None]
  - LEUKOCYTOSIS [None]
  - LUNG CANCER METASTATIC [None]
  - GAIT DISTURBANCE [None]
  - ASTHENIA [None]
  - MEMORY IMPAIRMENT [None]
  - ANAEMIA [None]
  - VASOGENIC CEREBRAL OEDEMA [None]
  - COMPUTERISED TOMOGRAM THORAX ABNORMAL [None]
  - EMPHYSEMA [None]
  - ATAXIA [None]
